FAERS Safety Report 13499685 (Version 1)
Quarter: 2017Q2

REPORT INFORMATION
  Report Type: Spontaneous
  Country: US (occurrence: US)
  Receive Date: 20170430
  Receipt Date: 20170430
  Transmission Date: 20170830
  Serious: Yes (Hospitalization)
  Sender: FDA-Public Use
  Company Number: None

PATIENT
  Age: 59 Year
  Sex: Male
  Weight: 113.85 kg

DRUGS (1)
  1. CEFAZOLIN [Suspect]
     Active Substance: CEFAZOLIN
     Indication: INFECTION PROPHYLAXIS
     Route: 042
     Dates: start: 20170329, end: 20170329

REACTIONS (7)
  - Hyperhidrosis [None]
  - Hypertension [None]
  - Blood creatinine increased [None]
  - Abdominal pain [None]
  - Chills [None]
  - Tachycardia [None]
  - Blood lactic acid increased [None]

NARRATIVE: CASE EVENT DATE: 20170329
